FAERS Safety Report 5407136-7 (Version None)
Quarter: 2007Q3

REPORT INFORMATION
  Report Type: 
  Country: None (occurrence: None)
  Receive Date: 20070803
  Receipt Date: 20070803
  Transmission Date: 20080115
  Serious: Yes (Hospitalization)
  Sender: FDA-Public Use
  Company Number: None

PATIENT
  Sex: Male
  Weight: 107 kg

DRUGS (8)
  1. FLUOROURACIL [Suspect]
     Dosage: 20440 MG
     Dates: end: 20070719
  2. BEVACIZUMAB (RHUMAB VEGF) [Suspect]
     Dosage: 2080 MG
     Dates: end: 20070719
  3. CAMPTOSAR [Suspect]
     Dosage: 1360 MG
     Dates: end: 20070719
  4. LEUCOVORIN CALCIUM [Suspect]
     Dosage: 3640 MG
     Dates: end: 20070719
  5. COMPAZINE [Concomitant]
  6. IMODIUM [Concomitant]
  7. LOMOTIL [Concomitant]
  8. ZOFRAN [Concomitant]

REACTIONS (2)
  - INFECTION [None]
  - SEPSIS [None]
